FAERS Safety Report 5851914-7 (Version None)
Quarter: 2008Q3

REPORT INFORMATION
  Report Type: 
  Country: None (occurrence: None)
  Receive Date: 20080820
  Receipt Date: 20080814
  Transmission Date: 20090109
  Serious: Yes (Life-Threatening, Hospitalization)
  Sender: FDA-Public Use
  Company Number: US-PFIZER INC-2005026888

PATIENT
  Sex: Female
  Weight: 68.4 kg

DRUGS (11)
  1. SUTENT [Suspect]
     Indication: GASTROINTESTINAL STROMAL TUMOUR
     Route: 048
     Dates: start: 20050202, end: 20050208
  2. MS CONTIN [Concomitant]
     Route: 048
     Dates: start: 20050127, end: 20050324
  3. HYGROTON [Concomitant]
     Route: 048
     Dates: start: 20050204, end: 20050324
  4. CAPTOPRIL [Concomitant]
     Route: 048
     Dates: start: 20050208, end: 20050209
  5. LOPRESSOR [Concomitant]
     Route: 048
     Dates: start: 20050208, end: 20050209
  6. ENALAPRIL MALEATE [Concomitant]
     Dates: start: 20050208, end: 20050208
  7. LASIX [Concomitant]
     Route: 048
     Dates: start: 20050208, end: 20050208
  8. LANSOPRAZOLE [Concomitant]
     Route: 048
     Dates: start: 20050208, end: 20050324
  9. ASPIRIN [Concomitant]
     Dates: start: 20050208, end: 20050324
  10. SODIUM CHLORIDE [Concomitant]
     Dates: start: 20050208, end: 20050212
  11. DALTEPARIN SODIUM [Concomitant]
     Dates: start: 20050208, end: 20050223

REACTIONS (3)
  - DEHYDRATION [None]
  - HYPERTENSION [None]
  - VENTRICULAR HYPOKINESIA [None]
